FAERS Safety Report 4904612-8 (Version None)
Quarter: 2006Q1

REPORT INFORMATION
  Report Type: 
  Country: None (occurrence: None)
  Receive Date: 20060208
  Receipt Date: 20050920
  Transmission Date: 20060701
  Serious: No
  Sender: FDA-Public Use
  Company Number: US-GLAXOSMITHKLINE-A0575063A

PATIENT
  Age: 40 Year
  Sex: Female

DRUGS (3)
  1. PAXIL [Suspect]
     Indication: DEPRESSION
     Route: 048
  2. ULTRAM [Concomitant]
  3. UNKNOWN MEDICATION [Concomitant]
     Indication: ANXIETY

REACTIONS (3)
  - AGITATION [None]
  - ANGER [None]
  - HEADACHE [None]
